FAERS Safety Report 6108813-5 (Version None)
Quarter: 2009Q1

REPORT INFORMATION
  Report Type: 
  Country: None (occurrence: None)
  Receive Date: 20090309
  Receipt Date: 20090309
  Transmission Date: 20090719
  Serious: Yes (Other)
  Sender: FDA-Public Use
  Company Number: None

PATIENT
  Age: 55 Year
  Sex: Female
  Weight: 68.0396 kg

DRUGS (2)
  1. ESTRATEST [Suspect]
     Indication: HOT FLUSH
     Dosage: 1 PILL ONCE A DAY PO
     Route: 048
     Dates: start: 19980601, end: 20040901
  2. ESTRATEST [Suspect]
     Indication: MENOPAUSE
     Dosage: 1 PILL ONCE A DAY PO
     Route: 048
     Dates: start: 19980601, end: 20040901

REACTIONS (1)
  - BREAST CANCER [None]
